FAERS Safety Report 13519427 (Version 2)
Quarter: 2017Q2

REPORT INFORMATION
  Report Type: Report from Study
  Country: US (occurrence: US)
  Receive Date: 20170505
  Receipt Date: 20170512
  Transmission Date: 20170830
  Serious: Yes (Other)
  Sender: FDA-Public Use
  Company Number: US-ACTELION-A-US2017-153365

PATIENT
  Age: 67 Year
  Sex: Male

DRUGS (7)
  1. PREDNISONE. [Concomitant]
     Active Substance: PREDNISONE
  2. TORSEMIDE. [Concomitant]
     Active Substance: TORSEMIDE
  3. ALDACTONE [Concomitant]
     Active Substance: SPIRONOLACTONE
  4. HYDROCODONE [Concomitant]
     Active Substance: HYDROCODONE
  5. OPSUMIT [Suspect]
     Active Substance: MACITENTAN
     Indication: PULMONARY ARTERIAL HYPERTENSION
     Dosage: 10 MG, QD
     Route: 048
     Dates: start: 20161019
  6. NAPROSYN [Concomitant]
     Active Substance: NAPROXEN
     Dosage: UNK
  7. LOSARTAN. [Concomitant]
     Active Substance: LOSARTAN

REACTIONS (2)
  - Small cell lung cancer [Unknown]
  - Pain [Unknown]
